FAERS Safety Report 23873297 (Version 1)
Quarter: 2024Q2

REPORT INFORMATION
  Report Type: Spontaneous
  Country: US (occurrence: None)
  Receive Date: 20240517
  Receipt Date: 20240517
  Transmission Date: 20240715
  Serious: Yes (Other)
  Sender: FDA-Public Use
  Company Number: None

PATIENT
  Age: 62 Year
  Sex: Female
  Weight: 52.2 kg

DRUGS (5)
  1. GAVILYTE G [Suspect]
     Active Substance: POLYETHYLENE GLYCOL 3350\POTASSIUM CHLORIDE\SODIUM BICARBONATE\SODIUM CHLORIDE\SODIUM SULFATE
     Indication: Colonoscopy
     Dosage: 1 GALLON TILL FINISHED ORAL?
     Route: 048
     Dates: start: 20240514, end: 20240515
  2. SUMATRIPTAN [Concomitant]
     Active Substance: SUMATRIPTAN
  3. PROBIOTICS NOS [Concomitant]
     Active Substance: PROBIOTICS NOS
  4. MAGNESIUM [Concomitant]
     Active Substance: MAGNESIUM
  5. vitb 12 [Concomitant]

REACTIONS (6)
  - Vomiting [None]
  - Dehydration [None]
  - Chills [None]
  - Abdominal pain upper [None]
  - Feeling abnormal [None]
  - Mental disorder [None]

NARRATIVE: CASE EVENT DATE: 20240515
